FAERS Safety Report 18388501 (Version 1)
Quarter: 2020Q4

REPORT INFORMATION
  Report Type: Other
  Country: US (occurrence: US)
  Receive Date: 20201015
  Receipt Date: 20201015
  Transmission Date: 20210114
  Serious: Yes (Other)
  Sender: FDA-Public Use
  Company Number: US-MIKART, LLC-2092824

PATIENT
  Sex: Female

DRUGS (2)
  1. OXYCODONE. [Concomitant]
     Active Substance: OXYCODONE HYDROCHLORIDE
  2. HYDROCODONE BITARTRATE AND ACETAMINOPHEN [Suspect]
     Active Substance: ACETAMINOPHEN\HYDROCODONE BITARTRATE
     Indication: PAIN
     Route: 048

REACTIONS (3)
  - Withdrawal syndrome [Unknown]
  - Diarrhoea [Unknown]
  - Dependence [Unknown]
